FAERS Safety Report 9396327 (Version 2)
Quarter: 2013Q3

REPORT INFORMATION
  Report Type: Spontaneous
  Country: US (occurrence: None)
  Receive Date: 20130708
  Receipt Date: 20130815
  Transmission Date: 20140515
  Serious: Yes (Hospitalization, Other)
  Sender: FDA-Public Use
  Company Number: ADR-2013-00478

PATIENT
  Sex: Male

DRUGS (1)
  1. LIORESAL [Suspect]
     Indication: MUSCLE SPASTICITY
     Dosage: 418.1 MCG/DAY

REACTIONS (8)
  - Muscle spasticity [None]
  - Cerebrospinal fluid leakage [None]
  - Implant site extravasation [None]
  - Pain [None]
  - Infusion site swelling [None]
  - No therapeutic response [None]
  - Withdrawal syndrome [None]
  - Hypotension [None]
